FAERS Safety Report 8103923-5 (Version None)
Quarter: 2012Q1

REPORT INFORMATION
  Report Type: 
  Country: None (occurrence: None)
  Receive Date: 20120201
  Receipt Date: 20120118
  Transmission Date: 20120608
  Serious: Yes (Life-Threatening, Hospitalization)
  Sender: FDA-Public Use
  Company Number: IT-CELGENEUS-083-21880-12011836

PATIENT
  Sex: Female

DRUGS (4)
  1. ACYCLOVIR [Concomitant]
     Dosage: 800 MILLIGRAM
     Route: 065
     Dates: start: 20111017
  2. PREDNISONE TAB [Concomitant]
     Indication: MULTIPLE MYELOMA
     Dosage: 75 MILLIGRAM
     Route: 048
     Dates: start: 20111017, end: 20111212
  3. REVLIMID [Suspect]
     Indication: MULTIPLE MYELOMA
     Dosage: 10 MILLIGRAM
     Route: 048
     Dates: start: 20111017, end: 20111212
  4. MELPHALAN HYDROCHLORIDE [Suspect]
     Indication: MULTIPLE MYELOMA
     Dosage: 7 MILLIGRAM
     Route: 048
     Dates: start: 20111017, end: 20111212

REACTIONS (2)
  - HYPOTENSION [None]
  - ESCHERICHIA SEPSIS [None]
